FAERS Safety Report 22628139 (Version 1)
Quarter: 2023Q2

REPORT INFORMATION
  Report Type: Spontaneous
  Country: FR (occurrence: FR)
  Receive Date: 20230622
  Receipt Date: 20230622
  Transmission Date: 20230721
  Serious: No
  Sender: FDA-Public Use
  Company Number: FR-GSK-FR2023EME081672

PATIENT

DRUGS (3)
  1. SOTROVIMAB [Suspect]
     Active Substance: SOTROVIMAB
     Indication: Coronavirus infection
     Dosage: 1000 MG
  2. REMDESIVIR [Concomitant]
     Active Substance: REMDESIVIR
     Indication: Coronavirus infection
     Dosage: 200 MG J1
  3. REMDESIVIR [Concomitant]
     Active Substance: REMDESIVIR
     Dosage: 100 MG J2 AND J3

REACTIONS (1)
  - Off label use [Unknown]
